FAERS Safety Report 24712814 (Version 1)
Quarter: 2024Q4

REPORT INFORMATION
  Report Type: Spontaneous
  Country: CZ (occurrence: CZ)
  Receive Date: 20241209
  Receipt Date: 20241209
  Transmission Date: 20250114
  Serious: Yes (Hospitalization)
  Sender: ELI LILLY AND COMPANY
  Company Number: CZ-AstraZeneca-CH-00709181A

PATIENT
  Age: 42 Year
  Sex: Female

DRUGS (10)
  1. ALIMTA [Suspect]
     Active Substance: PEMETREXED DISODIUM
     Indication: Lung neoplasm malignant
     Dosage: UNK UNK, UNKNOWN
     Route: 042
     Dates: start: 20240718
  2. TAGRISSO [Suspect]
     Active Substance: OSIMERTINIB
     Indication: Lung neoplasm malignant
     Dosage: 80 MG, DAILY
     Route: 048
     Dates: start: 20240718
  3. TAGRISSO [Suspect]
     Active Substance: OSIMERTINIB
     Dosage: 80 MG, DAILY
     Route: 048
     Dates: start: 20240718
  4. TAGRISSO [Suspect]
     Active Substance: OSIMERTINIB
     Dosage: 80 MG, DAILY
     Route: 048
     Dates: start: 20240718
  5. TAGRISSO [Suspect]
     Active Substance: OSIMERTINIB
     Dosage: 80 MG, DAILY
     Route: 048
     Dates: start: 20240718
  6. TAGRISSO [Suspect]
     Active Substance: OSIMERTINIB
     Dosage: 40 MG, DAILY
     Route: 048
  7. TAGRISSO [Suspect]
     Active Substance: OSIMERTINIB
     Dosage: 40 MG, DAILY
     Route: 048
  8. TAGRISSO [Suspect]
     Active Substance: OSIMERTINIB
     Dosage: 40 MG, DAILY
     Route: 048
  9. TAGRISSO [Suspect]
     Active Substance: OSIMERTINIB
     Dosage: 40 MG, DAILY
     Route: 048
  10. CARBOPLATIN [Concomitant]
     Active Substance: CARBOPLATIN
     Indication: Lung neoplasm malignant
     Dates: start: 20240718

REACTIONS (1)
  - Skin toxicity [Unknown]
